FAERS Safety Report 20943130 (Version 1)
Quarter: 2022Q2

REPORT INFORMATION
  Report Type: Other
  Country: US (occurrence: None)
  Receive Date: 20220610
  Receipt Date: 20220610
  Transmission Date: 20220721
  Serious: Yes (Other)
  Sender: FDA-Public Use
  Company Number: US-ROCHE-3107765

PATIENT
  Sex: Female

DRUGS (7)
  1. OCREVUS [Suspect]
     Active Substance: OCRELIZUMAB
     Indication: Multiple sclerosis
     Dosage: INFUSE 300 MG IV OVER AT LEAST 2.5 HOURS ON WEEK 0 AND 2?NEXT DOSE WAS DUE FOR MAR/2022.
     Route: 042
  2. METHYLPREDNISOLONE [Concomitant]
     Active Substance: METHYLPREDNISOLONE
     Route: 042
  3. ACETAMINOPHEN [Concomitant]
     Active Substance: ACETAMINOPHEN
     Route: 048
  4. DIPHENHYDRAMINE [Concomitant]
     Active Substance: DIPHENHYDRAMINE
     Route: 048
  5. LEVOTHYROXINE [Concomitant]
     Active Substance: LEVOTHYROXINE
     Dosage: 25 MCG INFUSE BY VENOUS CATHRATOR
  6. TOLTERODINE [Concomitant]
     Active Substance: TOLTERODINE
  7. MAXZIDE [Concomitant]
     Active Substance: HYDROCHLOROTHIAZIDE\TRIAMTERENE

REACTIONS (7)
  - Lymphocyte count abnormal [Unknown]
  - Demyelination [Unknown]
  - Poor quality sleep [Unknown]
  - Fatigue [Unknown]
  - Hypokinesia [Unknown]
  - Hepatic function abnormal [Unknown]
  - Magnetic resonance imaging abnormal [Unknown]
